FAERS Safety Report 5091235-6 (Version None)
Quarter: 2006Q3

REPORT INFORMATION
  Report Type: 
  Country: None (occurrence: None)
  Receive Date: 20060829
  Receipt Date: 20060821
  Transmission Date: 20061208
  Serious: Yes (Hospitalization)
  Sender: FDA-Public Use
  Company Number: 2006UW16732

PATIENT
  Age: 44 Year
  Sex: Female

DRUGS (7)
  1. SEROQUEL [Suspect]
     Route: 048
  2. LUNESTA [Suspect]
     Route: 048
     Dates: end: 20060727
  3. TOPAMAX [Suspect]
  4. ALCOHOL [Suspect]
  5. EFFEXOR [Concomitant]
     Route: 048
  6. LAMOTRIGINE [Concomitant]
  7. TRAZODONE HCL [Concomitant]

REACTIONS (9)
  - ALCOHOL POISONING [None]
  - DELIRIUM [None]
  - HEPATIC ENZYME INCREASED [None]
  - MENTAL STATUS CHANGES [None]
  - MULTIPLE DRUG OVERDOSE [None]
  - OVERDOSE [None]
  - SINUS TACHYCARDIA [None]
  - SOMNOLENCE [None]
  - WEIGHT INCREASED [None]
